FAERS Safety Report 6910184-9 (Version None)
Quarter: 2010Q3

REPORT INFORMATION
  Report Type: 
  Country: None (occurrence: None)
  Receive Date: 20100806
  Receipt Date: 20100729
  Transmission Date: 20110219
  Serious: Yes (Other)
  Sender: FDA-Public Use
  Company Number: US-NOVOPROD-312281

PATIENT
  Age: 49 Year
  Sex: Female

DRUGS (2)
  1. NORDITROPIN FLEXPRO 10 MG/ML [Suspect]
     Indication: PRODUCT USED FOR UNKNOWN INDICATION
     Dosage: UNKNOWN
  2. NORDITROPIN FLEXPRO 10 MG/ML [Suspect]
     Dosage: UNK

REACTIONS (3)
  - BREAST PAIN [None]
  - MENSTRUAL DISORDER [None]
  - SURGERY [None]
